FAERS Safety Report 14936817 (Version 11)
Quarter: 2019Q1

REPORT INFORMATION
  Report Type: Report from Study
  Country: US (occurrence: US)
  Receive Date: 20180525
  Receipt Date: 20190308
  Transmission Date: 20190417
  Serious: Yes (Hospitalization, Other)
  Sender: FDA-Public Use
  Company Number: US-UCBSA-2018021835

PATIENT
  Age: 74 Year
  Sex: Female

DRUGS (37)
  1. BRIVARACETAM [Suspect]
     Active Substance: BRIVARACETAM
     Indication: PARTIAL SEIZURES
     Dosage: 50 MG, ONCE DAILY (QD)
     Route: 048
     Dates: start: 20180112, end: 20180125
  2. BRIVIACT [Suspect]
     Active Substance: BRIVARACETAM
     Indication: PARTIAL SEIZURES
     Dosage: 50 MG, 2X/DAY (BID)
     Route: 048
  3. BRIVIACT [Suspect]
     Active Substance: BRIVARACETAM
     Indication: EPILEPSY
  4. CITALOPRAM [Concomitant]
     Active Substance: CITALOPRAM HYDROBROMIDE
     Indication: DEPRESSION
     Dosage: 40 MG, ONCE DAILY (QD)
     Route: 048
     Dates: start: 2007
  5. VITAMIN D [Concomitant]
     Active Substance: CHOLECALCIFEROL
     Indication: NUTRITIONAL SUPPLEMENTATION
     Dosage: 1000 IU, ONCE DAILY (QD)
     Route: 048
     Dates: start: 2014
  6. SENNA [Concomitant]
     Active Substance: SENNA LEAF\SENNOSIDES\SENNOSIDES A AND B
     Indication: CONSTIPATION
     Dosage: 2 DF, ONCE DAILY (QD)
     Route: 048
  7. TRIAMTERENE AND HYDROCHLOROTHIAZID [Concomitant]
     Active Substance: HYDROCHLOROTHIAZIDE\TRIAMTERENE
     Indication: PRODUCT USED FOR UNKNOWN INDICATION
     Dosage: 1 DF, ONCE DAILY (QD)
     Route: 048
  8. CRANBERRY. [Concomitant]
     Active Substance: CRANBERRY
     Indication: NUTRITIONAL SUPPLEMENTATION
     Dosage: 450 MG, ONCE DAILY (QD)
     Route: 048
     Dates: start: 2012
  9. TRAZODONE [Concomitant]
     Active Substance: TRAZODONE HYDROCHLORIDE
     Indication: DEPRESSION
     Dosage: 0.5 DF, ONCE DAILY (QD)
     Route: 048
     Dates: start: 2012
  10. ACETYLSALICYLIC ACID [Concomitant]
     Active Substance: ASPIRIN
     Indication: PRODUCT USED FOR UNKNOWN INDICATION
     Dosage: 81 MG, ONCE DAILY (QD)
     Route: 048
  11. LOVENOX [Concomitant]
     Active Substance: ENOXAPARIN SODIUM
     Indication: PRODUCT USED FOR UNKNOWN INDICATION
  12. POLYETHYLENE GLYCOL [Concomitant]
     Active Substance: POLYETHYLENE GLYCOLS
     Indication: PRODUCT USED FOR UNKNOWN INDICATION
     Dosage: 17 G, ONCE DAILY (QD)
     Route: 048
  13. VITAMIN B12 [Concomitant]
     Active Substance: CYANOCOBALAMIN
     Indication: NUTRITIONAL SUPPLEMENTATION
     Dosage: 500 MCQ, ONCE DAILY (QD)
     Route: 048
     Dates: start: 2015
  14. VITAMIN B6 [Concomitant]
     Active Substance: PYRIDOXINE HYDROCHLORIDE
     Indication: NUTRITIONAL SUPPLEMENTATION
     Dosage: 100 MG, ONCE DAILY (QD)
     Route: 048
     Dates: start: 2017
  15. LEVOTHYROXINE. [Concomitant]
     Active Substance: LEVOTHYROXINE
     Indication: HYPOTHYROIDISM
     Dosage: 75 ?G, ONCE DAILY (QD)
     Route: 048
     Dates: start: 1974
  16. VITAMIN B COMPLEX [Concomitant]
     Active Substance: CYANOCOBALAMIN\DEXPANTHENOL\NIACINAMIDE\PYRIDOXINE HYDROCHLORIDE\RIBOFLAVIN 5^-PHOSPHATE SODIUM\THIAMINE HYDROCHLORIDE\VITAMIN B COMPLEX
     Indication: NUTRITIONAL SUPPLEMENTATION
     Dosage: 1 DF, ONCE DAILY (QD)
     Route: 048
     Dates: start: 2015
  17. FISH OIL [Concomitant]
     Active Substance: FISH OIL
     Indication: NUTRITIONAL SUPPLEMENTATION
     Dosage: 2 G, ONCE DAILY (QD)
     Route: 048
     Dates: start: 2014
  18. IBUPROFEN. [Concomitant]
     Active Substance: IBUPROFEN
     Indication: PAIN
  19. DICLOFENAC SODIUM. [Concomitant]
     Active Substance: DICLOFENAC SODIUM
     Indication: ARTHRALGIA
     Dosage: 4 G, ON SKIN TWICE DAILY AND TWICE DAILY AS NEEDED ON L KNEE
  20. TOBRAMYCIN AND DEXAMETHASONE [Concomitant]
     Active Substance: DEXAMETHASONE\TOBRAMYCIN
     Indication: PRODUCT USED FOR UNKNOWN INDICATION
     Dosage: 1-2 DROPS EVERY MORNING, ONCE DAILY (QD)
  21. HYDROCHLOROTHIAZIDE. [Concomitant]
     Active Substance: HYDROCHLOROTHIAZIDE
     Indication: HYPERTENSION
     Dosage: 37.5-25 MG, ONCE DAILY (QD)
     Route: 048
     Dates: start: 2017, end: 20181025
  22. MAGNESIUM HYDROXIDE. [Concomitant]
     Active Substance: MAGNESIUM HYDROXIDE
     Indication: CONSTIPATION
     Dosage: 30 ML, AS NEEDED (PRN)
     Route: 048
  23. CETIRIZINE [Concomitant]
     Active Substance: CETIRIZINE HYDROCHLORIDE
     Indication: PRODUCT USED FOR UNKNOWN INDICATION
     Dosage: 10 MG, ONCE DAILY (QD)
     Route: 048
  24. CEFPODOXIME [Concomitant]
     Active Substance: CEFPODOXIME
     Indication: URINARY TRACT INFECTION
  25. BRIVARACETAM [Suspect]
     Active Substance: BRIVARACETAM
     Indication: EPILEPSY
     Dosage: 75 MG, DAILY (25 MG IN THE MORNING AND 50 MG IN THE NIGHT)
     Route: 048
     Dates: start: 20180126, end: 20180812
  26. BRIVARACETAM [Suspect]
     Active Substance: BRIVARACETAM
     Dosage: 50 MG, 2X/DAY (BID)
     Route: 048
     Dates: start: 20180813
  27. OXYCODONE [Concomitant]
     Active Substance: OXYCODONE
     Indication: ARTHRALGIA
     Dosage: 5 MG, AS NEEDED (PRN)
     Route: 048
     Dates: start: 20180507
  28. OXYBUTYNIN. [Concomitant]
     Active Substance: OXYBUTYNIN CHLORIDE
     Indication: HYPERTONIC BLADDER
     Dosage: 5 MG, ONCE DAILY (QD)
     Route: 048
     Dates: start: 2014
  29. POTASSIUM CHLORIDE. [Concomitant]
     Active Substance: POTASSIUM CHLORIDE
     Indication: NUTRITIONAL SUPPLEMENTATION
     Dosage: 20 MEQ, ONCE DAILY (QD)
     Route: 048
     Dates: start: 2015
  30. CORTISONE [Concomitant]
     Active Substance: CORTISONE\HYDROCORTISONE
     Indication: ARTHRALGIA
     Dosage: UNK
     Dates: start: 20180515, end: 20180515
  31. ACETAMINOPHEN. [Concomitant]
     Active Substance: ACETAMINOPHEN
     Indication: PAIN
     Dosage: 1000 MG, 3X/DAY (TID)
     Route: 048
  32. DOCUSATE SODIUM. [Concomitant]
     Active Substance: DOCUSATE SODIUM
     Indication: PRODUCT USED FOR UNKNOWN INDICATION
     Dosage: 100 MG, 2X/DAY (BID)
     Route: 048
  33. ARTIFICIAL TEARS [Concomitant]
     Active Substance: GLYCERIN\HYPROMELLOSES\POLYETHYLENE GLYCOL 400
     Indication: PRODUCT USED FOR UNKNOWN INDICATION
     Dosage: 1 DROP, AS AS NEEDED (PRN)
  34. PREDNISOLONE ACETATE. [Concomitant]
     Active Substance: PREDNISOLONE ACETATE
     Indication: PRODUCT USED FOR UNKNOWN INDICATION
     Dosage: 1 DROP, 4 TIMES AS NEEDED (PRN)
  35. COUMADIN [Concomitant]
     Active Substance: WARFARIN SODIUM
     Indication: PRODUCT USED FOR UNKNOWN INDICATION
  36. MIRALAX [Concomitant]
     Active Substance: POLYETHYLENE GLYCOL 3350
     Indication: CONSTIPATION
  37. ALEVE [Concomitant]
     Active Substance: NAPROXEN SODIUM
     Indication: ARTHRALGIA
     Dosage: 440 MG, AS NEEDED (PRN)
     Route: 048
     Dates: start: 20181005

REACTIONS (18)
  - Deep vein thrombosis [Not Recovered/Not Resolved]
  - Pulmonary hypertension [Recovered/Resolved]
  - Meniscus injury [Not Recovered/Not Resolved]
  - Anaemia [Not Recovered/Not Resolved]
  - Metabolic alkalosis [Not Recovered/Not Resolved]
  - Hypokalaemia [Recovered/Resolved]
  - Constipation [Recovering/Resolving]
  - Device dislocation [Recovering/Resolving]
  - Nausea [Recovered/Resolved]
  - Urinary tract infection [Recovered/Resolved]
  - Osteonecrosis [Recovering/Resolving]
  - Fall [Recovered/Resolved]
  - Headache [Recovered/Resolved]
  - Leukopenia [Not Recovered/Not Resolved]
  - Joint swelling [Not Recovered/Not Resolved]
  - Head injury [Recovered/Resolved]
  - Off label use [Unknown]
  - Femoral neck fracture [Not Recovered/Not Resolved]

NARRATIVE: CASE EVENT DATE: 20180119
